FAERS Safety Report 11276578 (Version 3)
Quarter: 2015Q4

REPORT INFORMATION
  Report Type: Spontaneous
  Country: US (occurrence: US)
  Receive Date: 20150716
  Receipt Date: 20151117
  Transmission Date: 20160304
  Serious: No
  Sender: FDA-Public Use
  Company Number: US-TOLMAR INC.-1040564

PATIENT
  Age: 79 Year
  Sex: Female

DRUGS (4)
  1. ELIDEL [Concomitant]
     Active Substance: PIMECROLIMUS
  2. CORTISONE [Concomitant]
     Active Substance: CORTISONE\HYDROCORTISONE
  3. METRONIDAZOLE. [Suspect]
     Active Substance: METRONIDAZOLE
     Indication: RASH
     Route: 061
     Dates: start: 20150305, end: 20150311
  4. METRONIDAZOLE. [Suspect]
     Active Substance: METRONIDAZOLE
     Indication: DERMATITIS
     Route: 061
     Dates: start: 20150305, end: 20150311

REACTIONS (3)
  - Erythema [Recovered/Resolved]
  - Skin exfoliation [Unknown]
  - Drug ineffective [None]

NARRATIVE: CASE EVENT DATE: 201503
